FAERS Safety Report 7623630-2 (Version None)
Quarter: 2011Q3

REPORT INFORMATION
  Report Type: 
  Country: None (occurrence: None)
  Receive Date: 20110701
  Receipt Date: 20110128
  Transmission Date: 20111222
  Serious: Yes (Hospitalization)
  Sender: FDA-Public Use
  Company Number: 7039022

PATIENT
  Age: 45 Year
  Sex: Female
  Weight: 114 kg

DRUGS (5)
  1. CITALOPRAM HYDROBROMIDE [Concomitant]
  2. BUPROPION HCL [Concomitant]
  3. REBIF [Suspect]
     Indication: MULTIPLE SCLEROSIS
     Dosage: 44 MCG, 3 IN 1 WK, SUBCUTANEOUS
     Route: 058
     Dates: start: 20100316
  4. XANAX [Concomitant]
  5. LEVOTHYROXINE SODIUM [Concomitant]

REACTIONS (4)
  - HEADACHE [None]
  - FALL [None]
  - INJECTION SITE ERYTHEMA [None]
  - FIBULA FRACTURE [None]
